FAERS Safety Report 8353219 (Version 2)
Quarter: 2014Q1

REPORT INFORMATION
  Report Type: Spontaneous
  Country: US (occurrence: US)
  Receive Date: 20120125
  Receipt Date: 20140123
  Transmission Date: 20141002
  Serious: No
  Sender: FDA-Public Use
  Company Number: US-PFIZER INC-2012017361

PATIENT
  Age: 62 Year
  Sex: Female
  Weight: 118 kg

DRUGS (10)
  1. NORVASC [Suspect]
     Indication: HYPERTENSION
     Dosage: 5 MG, DAILY
     Dates: start: 20111222, end: 201201
  2. FELDENE [Suspect]
     Indication: ARTHRITIS
     Dosage: 40 MG, DAILY
     Route: 048
  3. TOVIAZ [Suspect]
     Dosage: 8 MG, 1X/DAY
     Route: 048
  4. FLAGYL [Suspect]
  5. PROCARDIA [Suspect]
     Dosage: 30 MG, 1X/DAY
     Route: 048
  6. PROCARDIN [Concomitant]
     Dosage: UNK
  7. GLUCOPHAGE [Concomitant]
     Dosage: UNK
  8. ZESTORETIC [Concomitant]
     Dosage: UNK
  9. PRAVACHOL [Concomitant]
     Dosage: UNK
  10. PRILOSEC [Concomitant]
     Dosage: UNK

REACTIONS (3)
  - Oedema peripheral [Recovered/Resolved]
  - Skin disorder [Recovered/Resolved]
  - Dry skin [Recovered/Resolved]
